FAERS Safety Report 4597931-9 (Version None)
Quarter: 2005Q1

REPORT INFORMATION
  Report Type: 
  Country: None (occurrence: None)
  Receive Date: 20050301
  Receipt Date: 20050214
  Transmission Date: 20050727
  Serious: Yes (Death)
  Sender: FDA-Public Use
  Company Number: 2005-DE-00541GD

PATIENT
  Sex: Female

DRUGS (1)
  1. METHADONE HCL [Suspect]
     Indication: PAIN

REACTIONS (4)
  - BRONCHOPNEUMONIA [None]
  - LUNG ABSCESS [None]
  - PNEUMONIA ASPIRATION [None]
  - PROGRESSIVE SUPRANUCLEAR PALSY [None]
